FAERS Safety Report 9370008 (Version 2)
Quarter: 2013Q4

REPORT INFORMATION
  Report Type: Spontaneous
  Country: US (occurrence: US)
  Receive Date: 20130626
  Receipt Date: 20131111
  Transmission Date: 20140711
  Serious: Yes (Hospitalization, Disabling, Other)
  Sender: FDA-Public Use
  Company Number: US-009507513-1306USA011257

PATIENT
  Sex: Female
  Weight: 65.76 kg

DRUGS (3)
  1. NUVARING [Suspect]
     Indication: CONTRACEPTION
     Dosage: UNK
     Route: 067
     Dates: start: 200910, end: 20110517
  2. NUVARING [Suspect]
     Indication: DYSFUNCTIONAL UTERINE BLEEDING
  3. SPIRONOLACTONE [Concomitant]
     Indication: PRODUCT USED FOR UNKNOWN INDICATION
     Dosage: UNK
     Dates: start: 1998

REACTIONS (13)
  - Emotional distress [Not Recovered/Not Resolved]
  - Pulmonary embolism [Not Recovered/Not Resolved]
  - C-reactive protein increased [Unknown]
  - Oedema peripheral [Unknown]
  - Hepatic cyst [Unknown]
  - Off label use [Unknown]
  - Hot flush [Unknown]
  - Fibromyalgia [Unknown]
  - Neck injury [Unknown]
  - Road traffic accident [Unknown]
  - Seborrhoeic dermatitis [Unknown]
  - Meniscus operation [Unknown]
  - Meniscus injury [Unknown]
